FAERS Safety Report 24695604 (Version 2)
Quarter: 2025Q1

REPORT INFORMATION
  Report Type: Spontaneous
  Country: US (occurrence: US)
  Receive Date: 20241204
  Receipt Date: 20250128
  Transmission Date: 20250409
  Serious: Yes (Hospitalization, Other)
  Sender: ALEXION PHARMACEUTICALS
  Company Number: US-AstraZeneca-CH-00755359AP

PATIENT

DRUGS (1)
  1. BYDUREON BCISE [Suspect]
     Active Substance: EXENATIDE
     Route: 065

REACTIONS (8)
  - Malignant neoplasm progression [Unknown]
  - Bladder cancer [Unknown]
  - Squamous cell carcinoma of skin [Unknown]
  - Bladder cancer recurrent [Unknown]
  - Hepatic cancer [Unknown]
  - Malignant neoplasm of spinal cord [Unknown]
  - Incorrect dose administered by device [Unknown]
  - Device leakage [Unknown]
